FAERS Safety Report 15760447 (Version 1)
Quarter: 2018Q4

REPORT INFORMATION
  Report Type: Spontaneous
  Country: US (occurrence: US)
  Receive Date: 20181226
  Receipt Date: 20181226
  Transmission Date: 20190205
  Serious: Yes (Other)
  Sender: FDA-Public Use
  Company Number: US-NOVAST LABORATORIES, LTD-US-2018NOV000436

PATIENT

DRUGS (1)
  1. QUETIAPINE FUMARATE. [Suspect]
     Active Substance: QUETIAPINE FUMARATE
     Indication: PRODUCT USED FOR UNKNOWN INDICATION
     Dosage: 14.7 MG/KG, UNK
     Route: 048

REACTIONS (5)
  - Accidental exposure to product by child [Unknown]
  - Tachycardia [Unknown]
  - Respiratory depression [Unknown]
  - Somnolence [Unknown]
  - Hypertension [Unknown]
